FAERS Safety Report 6366382-9 (Version None)
Quarter: 2009Q3

REPORT INFORMATION
  Report Type: 
  Country: None (occurrence: None)
  Receive Date: 20090921
  Receipt Date: 20090910
  Transmission Date: 20100115
  Serious: Yes (Hospitalization)
  Sender: FDA-Public Use
  Company Number: KR-ELI_LILLY_AND_COMPANY-KR200906005181

PATIENT
  Age: 41 Year
  Sex: Male

DRUGS (12)
  1. HUMALOG MIX 75/25 [Suspect]
     Dosage: UNK, UNK
     Route: 058
     Dates: start: 20090401, end: 20090419
  2. HUMALOG MIX 75/25 [Suspect]
     Dosage: 16 IU, EACH MORNING
     Route: 058
     Dates: start: 20090420, end: 20090426
  3. HUMALOG MIX 75/25 [Suspect]
     Dosage: 8 IU, EACH EVENING
     Route: 058
     Dates: start: 20090420, end: 20090426
  4. HUMALOG MIX 75/25 [Suspect]
     Dosage: 16 IU, EACH MORNING
     Route: 058
     Dates: start: 20090427, end: 20090427
  5. HUMALOG MIX 75/25 [Suspect]
     Dosage: 10 IU, EACH EVENING
     Route: 058
     Dates: start: 20090427, end: 20090427
  6. HUMALOG MIX 75/25 [Suspect]
     Dosage: 18 IU, EACH MORNING
     Route: 058
     Dates: start: 20090428, end: 20090521
  7. HUMALOG MIX 75/25 [Suspect]
     Dosage: 10 IU, EACH EVENING
     Route: 058
     Dates: start: 20090428, end: 20090521
  8. HUMALOG MIX 75/25 [Suspect]
     Dosage: 14 IU, EACH MORNING
     Route: 058
     Dates: start: 20090522, end: 20090611
  9. HUMALOG MIX 75/25 [Suspect]
     Dosage: 8 IU, EACH EVENING
     Route: 058
     Dates: start: 20090522, end: 20090611
  10. HUMALOG MIX 75/25 [Suspect]
     Dosage: 12 IU, EACH MORNING
     Route: 058
     Dates: start: 20090612
  11. HUMALOG MIX 75/25 [Suspect]
     Dosage: 8 IU, EACH EVENING
     Route: 058
     Dates: start: 20090612
  12. ORAL ANTIDIABETICS [Concomitant]

REACTIONS (4)
  - DIABETIC NEUROPATHY [None]
  - HYPERSENSITIVITY [None]
  - INSOMNIA [None]
  - PAIN IN EXTREMITY [None]
